FAERS Safety Report 5372089-7 (Version None)
Quarter: 2007Q2

REPORT INFORMATION
  Report Type: 
  Country: None (occurrence: None)
  Receive Date: 20070615
  Receipt Date: 20070409
  Transmission Date: 20071010
  Serious: No
  Sender: FDA-Public Use
  Company Number: SP01204

PATIENT
  Age: 57 Year
  Sex: Female

DRUGS (4)
  1. XIFAXAN [Suspect]
     Indication: GASTRIC DISORDER
     Dosage: 1200 MG (400 MG, 3 IN 1 D), ORAL
     Route: 048
     Dates: start: 20070406, end: 20070407
  2. CIMETIDINE HCL [Concomitant]
  3. LORAZEPAM [Concomitant]
  4. HYDROCORTISONE (SUPPOSITORY) [Concomitant]

REACTIONS (3)
  - AMNESIA [None]
  - DIZZINESS [None]
  - HEADACHE [None]
